FAERS Safety Report 12547086 (Version 1)
Quarter: 2016Q3

REPORT INFORMATION
  Report Type: Spontaneous
  Country: IT (occurrence: IT)
  Receive Date: 20160711
  Receipt Date: 20160711
  Transmission Date: 20161109
  Serious: Yes (Hospitalization, Other)
  Sender: FDA-Public Use
  Company Number: IT-ALLERGAN-1662001US

PATIENT
  Age: 15 Year
  Sex: Male

DRUGS (3)
  1. PREDNISOLONE. [Concomitant]
     Active Substance: PREDNISOLONE
     Dosage: 75 MG, QD
  2. PREDNISOLONE. [Concomitant]
     Active Substance: PREDNISOLONE
     Indication: PRODUCT USED FOR UNKNOWN INDICATION
     Dosage: 10 MG, QD
  3. MESALAZINE UNK [Suspect]
     Active Substance: MESALAMINE
     Indication: COLITIS ULCERATIVE
     Dosage: 2800 MG, QD
     Route: 048

REACTIONS (11)
  - Dyspnoea [Unknown]
  - Granulomatosis with polyangiitis [Unknown]
  - Exercise tolerance decreased [Unknown]
  - Antineutrophil cytoplasmic antibody positive [Unknown]
  - Cough [Unknown]
  - Alveolar lung disease [Unknown]
  - Hypersensitivity [Unknown]
  - Lung disorder [Unknown]
  - Interstitial lung disease [Unknown]
  - Hypoxia [Unknown]
  - Fatigue [Unknown]
